FAERS Safety Report 19610562 (Version 4)
Quarter: 2022Q4

REPORT INFORMATION
  Report Type: Spontaneous
  Country: US (occurrence: US)
  Receive Date: 20210726
  Receipt Date: 20221130
  Transmission Date: 20230112
  Serious: No
  Sender: FDA-Public Use
  Company Number: US-PFIZER INC-2021734406

PATIENT
  Age: 72 Year
  Sex: Male

DRUGS (3)
  1. INLYTA [Suspect]
     Active Substance: AXITINIB
     Dosage: UNK
     Dates: start: 20201001
  2. INLYTA [Suspect]
     Active Substance: AXITINIB
     Dosage: 5 MG
     Dates: start: 20220101
  3. INLYTA [Suspect]
     Active Substance: AXITINIB
     Dosage: 3 MG, 2X/DAY

REACTIONS (10)
  - Wrong technique in product usage process [Unknown]
  - Bleeding time prolonged [Unknown]
  - Dry skin [Unknown]
  - Weight decreased [Recovered/Resolved]
  - Alopecia [Unknown]
  - Stomatitis [Unknown]
  - Taste disorder [Unknown]
  - Eating disorder [Unknown]
  - Diarrhoea [Unknown]
  - Constipation [Unknown]
